FAERS Safety Report 21917162 (Version 1)
Quarter: 2023Q1

REPORT INFORMATION
  Report Type: Other
  Country: None (occurrence: US)
  Receive Date: 20230126
  Receipt Date: 20230126
  Transmission Date: 20230417
  Serious: Yes (Hospitalization)
  Sender: FDA-Public Use
  Company Number: US-BIOLOGICAL E. LTD-2137037

PATIENT
  Age: 67 Year
  Sex: Male
  Weight: 80 kg

DRUGS (3)
  1. HEPARIN SODIUM [Suspect]
     Active Substance: HEPARIN SODIUM
     Indication: Pericardial excision
     Route: 042
  2. COAGULATION FACTOR IX HUMAN\COAGULATION FACTOR VII HUMAN\COAGULATION F [Interacting]
     Active Substance: COAGULATION FACTOR IX HUMAN\COAGULATION FACTOR VII HUMAN\COAGULATION FACTOR X HUMAN\PROTEIN C\PROTEI
     Route: 065
  3. ANDEXANET ALFA [Interacting]
     Active Substance: ANDEXANET ALFA
     Route: 065

REACTIONS (3)
  - Heparin resistance [Unknown]
  - Drug interaction [Unknown]
  - Drug ineffective [Unknown]
